FAERS Safety Report 24893646 (Version 1)
Quarter: 2025Q1

REPORT INFORMATION
  Report Type: Spontaneous
  Country: PL (occurrence: PL)
  Receive Date: 20250128
  Receipt Date: 20250128
  Transmission Date: 20250408
  Serious: Yes (Hospitalization)
  Sender: ROCHE
  Company Number: PL-ROCHE-10000181297

PATIENT
  Sex: Female
  Weight: 62 kg

DRUGS (3)
  1. OCREVUS [Suspect]
     Active Substance: OCRELIZUMAB
     Indication: Relapsing-remitting multiple sclerosis
     Route: 065
     Dates: start: 202206
  2. BACLOFEN [Concomitant]
     Active Substance: BACLOFEN
  3. SPIRONOLACTONE [Concomitant]
     Active Substance: SPIRONOLACTONE

REACTIONS (7)
  - Maternal exposure before pregnancy [Unknown]
  - Headache [Not Recovered/Not Resolved]
  - Disorientation [Unknown]
  - Somnolence [Recovering/Resolving]
  - Vision blurred [Unknown]
  - Musculoskeletal stiffness [Unknown]
  - Maternal exposure during pregnancy [Unknown]
